FAERS Safety Report 5444515-6 (Version None)
Quarter: 2007Q3

REPORT INFORMATION
  Report Type: 
  Country: None (occurrence: None)
  Receive Date: 20070906
  Receipt Date: 20070823
  Transmission Date: 20080115
  Serious: Yes (Hospitalization, Other)
  Sender: FDA-Public Use
  Company Number: US-ELI_LILLY_AND_COMPANY-US200708005023

PATIENT
  Age: 54 Year
  Sex: Female

DRUGS (3)
  1. FORTEO [Suspect]
     Indication: OSTEOPOROSIS
     Dosage: 20 UG, DAILY (1/D)
     Dates: start: 20070501, end: 20070601
  2. FORTEO [Suspect]
     Dosage: 20 UG, DAILY (1/D)
     Dates: start: 20070707, end: 20070813
  3. FORTEO [Suspect]
     Dosage: 20 UG, DAILY (1/D)
     Dates: start: 20070818

REACTIONS (1)
  - PELVIC NEOPLASM [None]
